FAERS Safety Report 6164657-X (Version None)
Quarter: 2009Q2

REPORT INFORMATION
  Report Type: 
  Country: None (occurrence: None)
  Receive Date: 20090423
  Receipt Date: 20090121
  Transmission Date: 20091009
  Serious: No
  Sender: FDA-Public Use
  Company Number: US-BAYER-200910902BCC

PATIENT
  Sex: Female

DRUGS (2)
  1. ALEVE (CAPLET) [Suspect]
     Indication: ACCIDENTAL EXPOSURE
     Dosage: TOTAL DAILY DOSE: 880 MG  UNIT DOSE: 220 MG
     Route: 048
  2. PREDNISONE [Concomitant]
     Indication: MULTIPLE ALLERGIES
     Route: 065

REACTIONS (1)
  - NO ADVERSE EVENT [None]
